FAERS Safety Report 9693935 (Version 1)
Quarter: 2013Q4

REPORT INFORMATION
  Report Type: Spontaneous
  Country: KR (occurrence: None)
  Receive Date: 20131114
  Receipt Date: 20131114
  Transmission Date: 20140711
  Serious: Yes (Other)
  Sender: FDA-Public Use
  Company Number: KR-AIKEM-000228

PATIENT
  Age: 15 Year
  Sex: Female

DRUGS (5)
  1. MYCOPHENOLATE MOFETIL [Suspect]
     Indication: PROPHYLAXIS AGAINST GRAFT VERSUS HOST DISEASE
  2. TACROLIMUS [Suspect]
     Indication: PROPHYLAXIS AGAINST GRAFT VERSUS HOST DISEASE
  3. CYCLOSPORIN [Concomitant]
  4. FLUDARABINE [Concomitant]
  5. RITUXIMAB [Concomitant]

REACTIONS (3)
  - Cystitis haemorrhagic [None]
  - BK virus infection [None]
  - Epstein-Barr viraemia [None]
